FAERS Safety Report 7987768-2 (Version None)
Quarter: 2011Q4

REPORT INFORMATION
  Report Type: 
  Country: None (occurrence: None)
  Receive Date: 20111216
  Receipt Date: 20101104
  Transmission Date: 20120403
  Serious: No
  Sender: FDA-Public Use
  Company Number: US-BRISTOL-MYERS SQUIBB COMPANY-15368665

PATIENT
  Age: 45 Year
  Sex: Female

DRUGS (3)
  1. TOPAMAX [Suspect]
  2. LEXAPRO [Suspect]
  3. ABILIFY [Suspect]
     Dosage: INITIAL DOSE:2MG DOSE DECREASED FROM 5MG TO 2MG

REACTIONS (1)
  - SENSATION OF FOREIGN BODY [None]
